FAERS Safety Report 5456139-5 (Version None)
Quarter: 2007Q3

REPORT INFORMATION
  Report Type: 
  Country: None (occurrence: None)
  Receive Date: 20070918
  Receipt Date: 20070702
  Transmission Date: 20080115
  Serious: Yes (Other)
  Sender: FDA-Public Use
  Company Number: US-ASTRAZENECA-2006UW23602

PATIENT
  Age: 39 Year
  Sex: Female
  Weight: 93.2 kg

DRUGS (5)
  1. SEROQUEL [Suspect]
     Indication: BIPOLAR I DISORDER
     Dosage: 600 MG TO 1000 MG
     Route: 048
     Dates: start: 19980101
  2. SEROQUEL [Suspect]
     Indication: SCHIZOPHRENIA
     Dosage: 600 MG TO 1000 MG
     Route: 048
     Dates: start: 19980101
  3. SEROQUEL [Suspect]
     Indication: DEPRESSION
     Dosage: 600 MG TO 1000 MG
     Route: 048
     Dates: start: 19980101
  4. RISPERDAL [Concomitant]
     Dates: start: 19960101, end: 19980101
  5. ZYPREXA [Concomitant]
     Dates: start: 19960101, end: 19980101

REACTIONS (5)
  - BLOOD CHOLESTEROL INCREASED [None]
  - DIABETES MELLITUS [None]
  - MUSCULAR WEAKNESS [None]
  - PANCREATITIS [None]
  - POOR PERIPHERAL CIRCULATION [None]
